FAERS Safety Report 8596139-X (Version None)
Quarter: 2012Q3

REPORT INFORMATION
  Report Type: 
  Country: None (occurrence: None)
  Receive Date: 20120815
  Receipt Date: 20120806
  Transmission Date: 20120928
  Serious: Yes (Hospitalization, Other)
  Sender: FDA-Public Use
  Company Number: US-ASTRAZENECA-2012SE30510

PATIENT
  Age: 50 Year
  Sex: Female

DRUGS (2)
  1. SYMBICORT [Suspect]
     Route: 055
  2. NEXIUM [Suspect]
     Route: 048

REACTIONS (9)
  - PNEUMONIA [None]
  - ULCER [None]
  - DYSPNOEA [None]
  - DRUG DOSE OMISSION [None]
  - ULCER HAEMORRHAGE [None]
  - PALPITATIONS [None]
  - PAIN [None]
  - INTENTIONAL DRUG MISUSE [None]
  - HERNIA [None]
